FAERS Safety Report 4632903-7 (Version None)
Quarter: 2005Q2

REPORT INFORMATION
  Report Type: 
  Country: None (occurrence: None)
  Receive Date: 20050325
  Receipt Date: 20041202
  Transmission Date: 20051028
  Serious: No
  Sender: FDA-Public Use
  Company Number: USA031255286

PATIENT
  Age: 75 Year
  Sex: Female
  Weight: 55 kg

DRUGS (8)
  1. FORTEO [Suspect]
     Indication: OSTEOPOROSIS
     Dosage: 20 UG/1 DAY
     Dates: start: 20031201
  2. CALCIUM GLUCONATE [Concomitant]
  3. VALIUM [Concomitant]
  4. SYNTHROID [Concomitant]
  5. LANOXIN (DIGOXIN STREULI) [Concomitant]
  6. NORVASC [Concomitant]
  7. COUMADIN [Concomitant]
  8. VITAMIN D [Concomitant]

REACTIONS (3)
  - ARTHRALGIA [None]
  - BONE DENSITY DECREASED [None]
  - INJECTION SITE PAIN [None]
